FAERS Safety Report 22077854 (Version 1)
Quarter: 2023Q1

REPORT INFORMATION
  Report Type: Spontaneous
  Country: US (occurrence: None)
  Receive Date: 20230308
  Receipt Date: 20230308
  Transmission Date: 20230418
  Serious: No
  Sender: FDA-Public Use
  Company Number: None

PATIENT
  Age: 56 Year
  Sex: Male
  Weight: 60.3 kg

DRUGS (15)
  1. ABIRATERONE ACETATE [Suspect]
     Active Substance: ABIRATERONE ACETATE
     Indication: Prostate cancer
     Dosage: FREQUENCY : DAILY;?
     Route: 048
  2. PREDNISONE [Suspect]
     Active Substance: PREDNISONE
     Indication: Second primary malignancy
     Dosage: FREQUENCY : TWICE A DAY;?
     Route: 048
  3. PREDNISONE [Suspect]
     Active Substance: PREDNISONE
     Indication: Bone cancer
  4. BUSPIRONE [Concomitant]
     Active Substance: BUSPIRONE HYDROCHLORIDE
  5. CARBOXYMETHYLCELLULOSE [Concomitant]
     Active Substance: CARBOXYMETHYLCELLULOSE
  6. CLARITIN [Concomitant]
     Active Substance: LORATADINE
  7. CYCLOBENZAPRINE [Concomitant]
     Active Substance: CYCLOBENZAPRINE
  8. ERYTHROMYCIN [Concomitant]
     Active Substance: ERYTHROMYCIN
  9. HABITROL [Concomitant]
     Active Substance: NICOTINE
  10. KLONOPIN [Concomitant]
     Active Substance: CLONAZEPAM
  11. LIPITOR [Concomitant]
     Active Substance: ATORVASTATIN CALCIUM
  12. NAPROXEN [Concomitant]
     Active Substance: NAPROXEN
  13. PEPCID [Concomitant]
     Active Substance: FAMOTIDINE
  14. VITAMINS [Concomitant]
     Active Substance: VITAMINS
  15. ZOLOFT [Concomitant]
     Active Substance: SERTRALINE HYDROCHLORIDE

REACTIONS (5)
  - Chest pain [None]
  - Pain in extremity [None]
  - Pain [None]
  - Mass [None]
  - Insomnia [None]
